FAERS Safety Report 11745458 (Version 1)
Quarter: 2015Q4

REPORT INFORMATION
  Report Type: Spontaneous
  Country: US (occurrence: None)
  Receive Date: 20151116
  Receipt Date: 20151116
  Transmission Date: 20160304
  Serious: Yes (Disabling)
  Sender: FDA-Public Use
  Company Number: None

PATIENT
  Age: 82 Year
  Sex: Male
  Weight: 133.81 kg

DRUGS (12)
  1. POTASSIUM [Concomitant]
     Active Substance: POTASSIUM
  2. ALLOPURINOL. [Concomitant]
     Active Substance: ALLOPURINOL
  3. VITAMIN D [Concomitant]
     Active Substance: CHOLECALCIFEROL
  4. BUMEX [Concomitant]
     Active Substance: BUMETANIDE
  5. SYNTHROID [Concomitant]
     Active Substance: LEVOTHYROXINE SODIUM
  6. SAWTOOTH [Concomitant]
  7. ATORVASTATIN TAB 10 MG MYLAN [Suspect]
     Active Substance: ATORVASTATIN
     Indication: CEREBROVASCULAR ACCIDENT PROPHYLAXIS
     Route: 048
     Dates: start: 20150101, end: 20151028
  8. ATORVASTATIN TAB 10 MG MYLAN [Suspect]
     Active Substance: ATORVASTATIN
     Indication: ISCHAEMIC HEART DISEASE PROPHYLAXIS
     Route: 048
     Dates: start: 20150101, end: 20151028
  9. VALSARTAN. [Concomitant]
     Active Substance: VALSARTAN
  10. NIASPAN [Concomitant]
     Active Substance: NIACIN
  11. CLOPIDOGREL [Concomitant]
     Active Substance: CLOPIDOGREL BISULFATE
  12. PALMETTO [Concomitant]

REACTIONS (5)
  - Mobility decreased [None]
  - Dysstasia [None]
  - Abasia [None]
  - Pain in extremity [None]
  - Muscular weakness [None]

NARRATIVE: CASE EVENT DATE: 20151024
